FAERS Safety Report 10696947 (Version 2)
Quarter: 2015Q1

REPORT INFORMATION
  Report Type: Spontaneous
  Country: US (occurrence: US)
  Receive Date: 20150108
  Receipt Date: 20150108
  Transmission Date: 20150721
  Serious: Yes (Hospitalization)
  Sender: FDA-Public Use
  Company Number: US-CIPLA LTD.-2014US03005

PATIENT

DRUGS (6)
  1. TAMOXIFEN [Suspect]
     Active Substance: TAMOXIFEN
     Indication: OVARIAN CANCER
  2. CARBOPLATIN. [Suspect]
     Active Substance: CARBOPLATIN
     Indication: OVARIAN CANCER
     Dosage: 6 CYCLES
  3. GEMCITABINE [Suspect]
     Active Substance: GEMCITABINE\GEMCITABINE HYDROCHLORIDE
     Indication: OVARIAN CANCER STAGE III
     Dosage: 800 MG/M2 ON DAYS 1, 14, AND 28, EVERY 4 WEEKS
  4. PEGYLATED LIPOSOMAL DOXORUBICIN [Suspect]
     Active Substance: DOXORUBICIN
     Indication: OVARIAN CANCER
  5. ANASTROZOLE. [Suspect]
     Active Substance: ANASTROZOLE
     Indication: OVARIAN CANCER
  6. PACLITAXEL. [Suspect]
     Active Substance: PACLITAXEL
     Indication: OVARIAN CANCER
     Dosage: 6 CYCLES

REACTIONS (11)
  - Tumour associated fever [Unknown]
  - Interstitial lung disease [Unknown]
  - Dyspnoea [Recovering/Resolving]
  - Neoplasm malignant [Unknown]
  - Pulmonary embolism [Unknown]
  - Disease progression [Unknown]
  - Metastases to liver [Unknown]
  - Tachycardia [Unknown]
  - Pneumonia [Unknown]
  - Pulmonary oedema [Unknown]
  - Emphysema [Unknown]

NARRATIVE: CASE EVENT DATE: 200511
